FAERS Safety Report 6894400-8 (Version None)
Quarter: 2010Q3

REPORT INFORMATION
  Report Type: 
  Country: None (occurrence: None)
  Receive Date: 20100802
  Receipt Date: 20100723
  Transmission Date: 20110219
  Serious: Yes (Life-Threatening)
  Sender: FDA-Public Use
  Company Number: DE-ELI_LILLY_AND_COMPANY-DE201006006331

PATIENT
  Sex: Female
  Weight: 85.5 kg

DRUGS (10)
  1. PEMETREXED [Suspect]
     Indication: NON-SMALL CELL LUNG CANCER
     Dosage: 500 MG/M2, ON DAY 1 EVERY 21 DAYS
     Route: 042
     Dates: start: 20100519, end: 20100519
  2. CISPLATIN [Suspect]
     Indication: NON-SMALL CELL LUNG CANCER
     Dosage: 75MG/M2 ON DAY 1 EVERY 21 DAYS
     Route: 042
     Dates: start: 20100519, end: 20100519
  3. BEVACIZUMAB [Suspect]
     Indication: NON-SMALL CELL LUNG CANCER
     Dosage: 7.5MG/KG, ON DAY 1 EVERY 21 DAYS
     Route: 042
     Dates: start: 20100519
  4. MORPHINE [Concomitant]
     Indication: SEDATION
     Dates: start: 20100616, end: 20100616
  5. FOLIC ACID [Concomitant]
     Indication: PROPHYLAXIS
     Dosage: UNK, UNKNOWN
     Dates: start: 20100512
  6. VITAMIN B-12 [Concomitant]
     Indication: PROPHYLAXIS
     Dosage: UNK, UNKNOWN
     Dates: start: 20100512, end: 20100512
  7. DEXAMETHASONE [Concomitant]
     Indication: PROPHYLAXIS
     Dosage: UNK, UNKNOWN
     Dates: start: 20100518, end: 20100520
  8. OXETACAINE [Concomitant]
     Dosage: UNK, UNKNOWN
     Dates: start: 20100609
  9. IMIPENEM [Concomitant]
     Dosage: UNK, UNKNOWN
     Dates: start: 20100615, end: 20100628
  10. PARACETAMOL [Concomitant]
     Dosage: UNK, UNKNOWN
     Dates: start: 20100615, end: 20100615

REACTIONS (1)
  - LEFT VENTRICULAR DYSFUNCTION [None]
